FAERS Safety Report 6300385-5 (Version None)
Quarter: 2009Q3

REPORT INFORMATION
  Report Type: 
  Country: None (occurrence: None)
  Receive Date: 20090805
  Receipt Date: 20090723
  Transmission Date: 20100115
  Serious: Yes (Other)
  Sender: FDA-Public Use
  Company Number: 440004K09USA

PATIENT
  Age: 57 Year
  Sex: Male

DRUGS (8)
  1. SEROSTIM [Suspect]
     Indication: OFF LABEL USE
     Dosage: 6 MG, 1 IN 1 DAYS, SUBCUTANEOUS
     Route: 058
     Dates: start: 20081007, end: 20081013
  2. NORVIR [Concomitant]
  3. REYATAZ [Concomitant]
  4. LEXIVA [Concomitant]
  5. ISENTRIF (ALL OTHER THERAPEUTIC PRODUCTS) [Concomitant]
  6. LIPITOR [Concomitant]
  7. METOPROLOL(METOPROLOL  /00376901/) [Concomitant]
  8. RAMITRIL (ALL OTHER THERAPEUTIC PRODUCTS) [Concomitant]

REACTIONS (4)
  - ACTIVITIES OF DAILY LIVING IMPAIRED [None]
  - MOVEMENT DISORDER [None]
  - NEUROPATHY PERIPHERAL [None]
  - PAIN IN EXTREMITY [None]
